FAERS Safety Report 8413809-4 (Version None)
Quarter: 2012Q2

REPORT INFORMATION
  Report Type: 
  Country: None (occurrence: None)
  Receive Date: 20120605
  Receipt Date: 20120525
  Transmission Date: 20120825
  Serious: Yes (Hospitalization, Other)
  Sender: FDA-Public Use
  Company Number: US-MERCK-1201USA00744

PATIENT
  Age: 74 Year
  Sex: Female
  Weight: 43 kg

DRUGS (4)
  1. FOSAMAX [Suspect]
     Indication: OSTEOPOROSIS
     Route: 048
     Dates: start: 19950101, end: 20091101
  2. BONIVA [Suspect]
     Route: 048
     Dates: start: 19950101, end: 20091101
  3. ALENDRONATE SODIUM [Suspect]
     Route: 048
     Dates: start: 20081101, end: 20090801
  4. FOSAMAX [Suspect]
     Route: 048
     Dates: start: 20080404, end: 20080727

REACTIONS (37)
  - UTERINE CANCER [None]
  - COLONIC POLYP [None]
  - GOITRE [None]
  - PHARYNGEAL ERYTHEMA [None]
  - HEAD INJURY [None]
  - CORONARY ARTERY DISEASE [None]
  - AORTIC ANEURYSM [None]
  - HYPEREOSINOPHILIC SYNDROME [None]
  - BRONCHITIS CHRONIC [None]
  - HYPERTENSION [None]
  - LUNG NEOPLASM [None]
  - SENILE DEMENTIA [None]
  - FEMUR FRACTURE [None]
  - FEMORAL HERNIA [None]
  - IRRITABLE BOWEL SYNDROME [None]
  - EMPHYSEMA [None]
  - CARDIAC MURMUR [None]
  - PARATHYROID TUMOUR BENIGN [None]
  - HYPERPARATHYROIDISM PRIMARY [None]
  - BODY HEIGHT DECREASED [None]
  - OOPHORECTOMY [None]
  - OSTEOARTHRITIS [None]
  - SCOLIOSIS [None]
  - RHONCHI [None]
  - RECTAL HAEMORRHAGE [None]
  - BRONCHIAL HYPERREACTIVITY [None]
  - PULMONARY EMBOLISM [None]
  - HAEMORRHOIDS [None]
  - FALL [None]
  - RESPIRATORY FAILURE [None]
  - CHRONIC OBSTRUCTIVE PULMONARY DISEASE [None]
  - KYPHOSCOLIOSIS [None]
  - OROPHARYNGEAL PAIN [None]
  - UPPER-AIRWAY COUGH SYNDROME [None]
  - MYOCARDIAL INFARCTION [None]
  - CATARACT [None]
  - DYSLIPIDAEMIA [None]
